FAERS Safety Report 4788930-2 (Version None)
Quarter: 2005Q4

REPORT INFORMATION
  Report Type: 
  Country: None (occurrence: None)
  Receive Date: 20051004
  Receipt Date: 20050921
  Transmission Date: 20060501
  Serious: Yes (Hospitalization)
  Sender: FDA-Public Use
  Company Number: 2005132531

PATIENT
  Age: 66 Year
  Sex: Female
  Weight: 46.7205 kg

DRUGS (3)
  1. DETROL LA [Suspect]
     Indication: HYPERTONIC BLADDER
     Dosage: 4 MG (4 MG, 1 IN 1 D)
     Dates: start: 20050904, end: 20050906
  2. ALPRAZOLAM [Suspect]
     Indication: DEPRESSION
     Dosage: DAILY
     Dates: start: 20050907
  3. TROSPIUM CHLORIDE (TROSPIUM CHLORIDE) [Suspect]
     Indication: HYPERTONIC BLADDER
     Dosage: BID
     Dates: start: 20050911

REACTIONS (7)
  - ANXIETY [None]
  - DEPRESSION [None]
  - DRY MOUTH [None]
  - DRY THROAT [None]
  - DYSPHAGIA [None]
  - INSOMNIA [None]
  - POSTNASAL DRIP [None]
